FAERS Safety Report 25380271 (Version 1)
Quarter: 2025Q2

REPORT INFORMATION
  Report Type: Spontaneous
  Country: US (occurrence: US)
  Receive Date: 20250530
  Receipt Date: 20250530
  Transmission Date: 20250716
  Serious: No
  Sender: SANOFI AVENTIS
  Company Number: US-SA-2025SA153408

PATIENT
  Age: 7 Year
  Sex: Male

DRUGS (13)
  1. DUPIXENT [Suspect]
     Active Substance: DUPILUMAB
     Indication: Sickle cell disease
     Dosage: 300 MG, Q4W
     Route: 058
  2. ACETAMINOPHEN\HYDROCODONE [Concomitant]
     Active Substance: ACETAMINOPHEN\HYDROCODONE
  3. FLONASE ALLERGY RELIEF [Concomitant]
     Active Substance: FLUTICASONE PROPIONATE
  4. FAMOTIDINE [Concomitant]
     Active Substance: FAMOTIDINE
  5. ENDARI [Concomitant]
     Active Substance: GLUTAMINE
  6. AVEENO BABY [AVENA SATIVA] [Concomitant]
  7. ZITHROMAX [Concomitant]
     Active Substance: AZITHROMYCIN DIHYDRATE
  8. ALBUTEROL SULFATE [Concomitant]
     Active Substance: ALBUTEROL SULFATE
  9. TACROLIMUS [Concomitant]
     Active Substance: TACROLIMUS
  10. MOMETASONE FUROATE [Concomitant]
     Active Substance: MOMETASONE FUROATE
  11. ALAWAY [Concomitant]
     Active Substance: KETOTIFEN FUMARATE
  12. HYDROXYUREA [Concomitant]
     Active Substance: HYDROXYUREA
  13. IBU [Concomitant]
     Active Substance: IBUPROFEN

REACTIONS (1)
  - Drug effective for unapproved indication [Unknown]
